FAERS Safety Report 8415903-0 (Version None)
Quarter: 2012Q2

REPORT INFORMATION
  Report Type: 
  Country: None (occurrence: None)
  Receive Date: 20120323
  Receipt Date: 20110413
  Transmission Date: 20120825
  Serious: Yes (Other)
  Sender: FDA-Public Use
  Company Number: 163-21880-11041735

PATIENT
  Age: 85 Year
  Sex: Male
  Weight: 70.3075 kg

DRUGS (6)
  1. ASPIRIN [Concomitant]
  2. FLOMAX [Concomitant]
  3. REVLIMID [Suspect]
     Indication: MYELODYSPLASTIC SYNDROME
     Dosage: 20 MG, DAILY, PO
     Route: 048
     Dates: start: 20110308
  4. OMEGA-3-ACID ETHYL ESTERS (LOVAZA) [Concomitant]
  5. ATENOLOL [Concomitant]
  6. ANTIDEPRESSANT (ANTIDEPRESSANTS) [Concomitant]

REACTIONS (1)
  - TESTICULAR OEDEMA [None]
